FAERS Safety Report 5068869-8 (Version None)
Quarter: 2006Q3

REPORT INFORMATION
  Report Type: 
  Country: None (occurrence: None)
  Receive Date: 20060802
  Receipt Date: 20060512
  Transmission Date: 20061208
  Serious: No
  Sender: FDA-Public Use
  Company Number: US-BRISTOL-MYERS SQUIBB COMPANY-13376322

PATIENT
  Age: 69 Year
  Sex: Male
  Weight: 105 kg

DRUGS (8)
  1. COUMADIN [Suspect]
     Indication: ATRIAL FIBRILLATION
  2. GEMCITABINE [Concomitant]
  3. FIORINAL [Concomitant]
  4. CARBOPLATIN [Concomitant]
  5. LIPITOR [Concomitant]
  6. PREVACID [Concomitant]
  7. ALLOPURINOL [Concomitant]
  8. COREG [Concomitant]

REACTIONS (1)
  - PLATELET COUNT DECREASED [None]
